FAERS Safety Report 23886429 (Version 3)
Quarter: 2024Q2

REPORT INFORMATION
  Report Type: Spontaneous
  Country: US (occurrence: US)
  Receive Date: 20240522
  Receipt Date: 20240613
  Transmission Date: 20240716
  Serious: Yes (Hospitalization)
  Sender: FDA-Public Use
  Company Number: US-SA-SAC20240517000193

PATIENT

DRUGS (2)
  1. LARONIDASE [Suspect]
     Active Substance: LARONIDASE
     Indication: Mucopolysaccharidosis I
     Dosage: 31.9 (UNIT NOT SPECIFIED) QW
     Route: 042
     Dates: start: 20150603
  2. LARONIDASE [Suspect]
     Active Substance: LARONIDASE
     Dosage: 37.7 (UNIT NOT SPECIFIED) QW
     Route: 042
     Dates: start: 2024

REACTIONS (10)
  - Central venous catheter removal [Not Recovered/Not Resolved]
  - Chest pain [Recovering/Resolving]
  - Bone pain [Recovering/Resolving]
  - Back pain [Recovering/Resolving]
  - Head discomfort [Recovering/Resolving]
  - Dyspepsia [Recovered/Resolved]
  - Burning sensation [Not Recovered/Not Resolved]
  - Product dose omission issue [Unknown]
  - Arthralgia [Recovering/Resolving]
  - Headache [Recovering/Resolving]

NARRATIVE: CASE EVENT DATE: 20240101
